FAERS Safety Report 23888011 (Version 1)
Quarter: 2024Q2

REPORT INFORMATION
  Report Type: Spontaneous
  Country: HR (occurrence: HR)
  Receive Date: 20240523
  Receipt Date: 20240523
  Transmission Date: 20240716
  Serious: Yes (Hospitalization, Other)
  Sender: FDA-Public Use
  Company Number: HR-CELLTRION INC.-2024HR011639

PATIENT

DRUGS (1)
  1. TRUXIMA [Suspect]
     Active Substance: RITUXIMAB-ABBS
     Indication: Marginal zone lymphoma
     Dosage: 375 MG/M2
     Route: 042
     Dates: start: 202306, end: 202311

REACTIONS (7)
  - Syncope [Unknown]
  - Rectal tenesmus [Unknown]
  - Tachycardia [Unknown]
  - Erythema [Unknown]
  - Hyperhidrosis [Unknown]
  - Chills [Unknown]
  - Intentional product use issue [Unknown]

NARRATIVE: CASE EVENT DATE: 20230901
